FAERS Safety Report 24628584 (Version 1)
Quarter: 2024Q4

REPORT INFORMATION
  Report Type: Spontaneous
  Country: PL (occurrence: PL)
  Receive Date: 20241117
  Receipt Date: 20241117
  Transmission Date: 20250115
  Serious: Yes (Disabling, Other)
  Sender: AMGEN
  Company Number: PL-AMGEN-POLSP2024224680

PATIENT
  Age: 65 Year
  Sex: Male
  Weight: 106 kg

DRUGS (7)
  1. VECTIBIX [Suspect]
     Active Substance: PANITUMUMAB
     Indication: Product used for unknown indication
     Dosage: 6 MILLIGRAM/KILOGRAM
     Route: 040
     Dates: start: 20131220, end: 20200305
  2. VECTIBIX [Suspect]
     Active Substance: PANITUMUMAB
     Dosage: 6 MILLIGRAM/KILOGRAM
     Route: 040
     Dates: start: 20200430
  3. VECTIBIX [Suspect]
     Active Substance: PANITUMUMAB
     Dosage: 6 MILLIGRAM/KILOGRAM, Q3WK (EVERY 21 DAYS) (DUE DOSE 600MG IV 60MIN)
     Route: 040
     Dates: start: 20241107
  4. OXALIPLATIN [Concomitant]
     Active Substance: OXALIPLATIN
     Dosage: UNK
     Dates: start: 20120807
  5. FLUOROURACIL [Concomitant]
     Active Substance: FLUOROURACIL
     Dosage: UNK
     Dates: start: 20120123, end: 20120807
  6. LEUCOVORIN [Concomitant]
     Active Substance: LEUCOVORIN\LEUCOVORIN CALCIUM
     Dosage: UNK
     Dates: start: 20120123, end: 20120807
  7. IRINOTECAN [Concomitant]
     Active Substance: IRINOTECAN
     Dosage: UNK
     Dates: start: 20130920, end: 20131115

REACTIONS (10)
  - Peroneal nerve injury [Unknown]
  - Spinal pain [Unknown]
  - Gait disturbance [Unknown]
  - Off label use [Unknown]
  - Skin toxicity [Unknown]
  - Skin lesion [Unknown]
  - Rash maculo-papular [Unknown]
  - Skin fissures [Unknown]
  - Rash pustular [Unknown]
  - Erythema [Unknown]

NARRATIVE: CASE EVENT DATE: 20160308
